FAERS Safety Report 6955073-9 (Version None)
Quarter: 2010Q3

REPORT INFORMATION
  Report Type: 
  Country: None (occurrence: None)
  Receive Date: 20100825
  Receipt Date: 20100809
  Transmission Date: 20110219
  Serious: Yes (Death, Life-Threatening, Hospitalization)
  Sender: FDA-Public Use
  Company Number: 2010003398

PATIENT
  Age: 80 Year
  Sex: Male

DRUGS (5)
  1. ERLOTINIB HYDROCHLORIDE [Suspect]
     Indication: MYELODYSPLASTIC SYNDROME
     Dosage: (100 MG),ORAL
     Route: 048
     Dates: start: 20100325, end: 20100614
  2. ANUSOL (ANUSOL) [Concomitant]
  3. CIPRO (CIPROPLOXACIN HYDROCHLORIDE) [Concomitant]
  4. MULTIVITAMIN NOS [Concomitant]
  5. OMEPRAZOLE [Concomitant]

REACTIONS (1)
  - PNEUMONIA [None]
